FAERS Safety Report 4640965-6 (Version None)
Quarter: 2005Q2

REPORT INFORMATION
  Report Type: 
  Country: None (occurrence: None)
  Receive Date: 20050420
  Receipt Date: 20050411
  Transmission Date: 20051028
  Serious: Yes (Death, Other)
  Sender: FDA-Public Use
  Company Number: FR-MERCK-0504FRA00044

PATIENT
  Age: 60 Year
  Sex: Female

DRUGS (13)
  1. PRIMAXIN [Suspect]
     Indication: POSTOPERATIVE INFECTION
     Route: 042
     Dates: start: 20011220, end: 20020113
  2. PRIMAXIN [Suspect]
     Indication: URINARY TRACT INFECTION
     Route: 042
     Dates: start: 20011220, end: 20020113
  3. SULFAMETHOXAZOLE AND TRIMETHOPRIM [Concomitant]
     Indication: POSTOPERATIVE INFECTION
     Route: 048
     Dates: start: 20011206, end: 20011219
  4. SULFAMETHOXAZOLE AND TRIMETHOPRIM [Concomitant]
     Indication: URINARY TRACT INFECTION
     Route: 048
     Dates: start: 20011206, end: 20011219
  5. CIPROFLOXACIN [Concomitant]
     Indication: POSTOPERATIVE INFECTION
     Route: 065
     Dates: start: 20011206, end: 20011219
  6. CIPROFLOXACIN [Concomitant]
     Indication: URINARY TRACT INFECTION
     Route: 065
     Dates: start: 20011206, end: 20011219
  7. GENTAMICIN [Concomitant]
     Indication: POSTOPERATIVE INFECTION
     Route: 065
     Dates: start: 20011220, end: 20011229
  8. GENTAMICIN [Concomitant]
     Route: 065
     Dates: start: 20020210, end: 20020219
  9. GENTAMICIN [Concomitant]
     Indication: URINARY TRACT INFECTION
     Route: 065
     Dates: start: 20011220, end: 20011229
  10. GENTAMICIN [Concomitant]
     Route: 065
     Dates: start: 20020210, end: 20020219
  11. COLISTIN [Concomitant]
     Indication: POSTOPERATIVE INFECTION
     Route: 065
     Dates: start: 20020114, end: 20020209
  12. COLISTIN [Concomitant]
     Indication: URINARY TRACT INFECTION
     Route: 065
     Dates: start: 20020114, end: 20020209
  13. INSULIN [Concomitant]
     Indication: DIABETES MELLITUS INSULIN-DEPENDENT
     Route: 058
     Dates: end: 20020219

REACTIONS (3)
  - DRUG RESISTANCE [None]
  - MULTI-ORGAN FAILURE [None]
  - SEPTIC SHOCK [None]
